FAERS Safety Report 8010706 (Version 21)
Quarter: 2014Q2

REPORT INFORMATION
  Report Type: Spontaneous
  Country: US (occurrence: US)
  Receive Date: 20110627
  Receipt Date: 20140515
  Transmission Date: 20141212
  Serious: Yes (Other)
  Sender: FDA-Public Use
  Company Number: PHEH2011US00504

PATIENT
  Sex: Female
  Weight: 64.1 kg

DRUGS (12)
  1. AREDIA [Suspect]
     Indication: PLASMA CELL MYELOMA
     Dosage: 90 MG, QMO
     Route: 042
     Dates: start: 200106, end: 2002
  2. AREDIA [Suspect]
     Indication: OSTEOPOROSIS
     Dates: start: 2002, end: 2004
  3. AREDIA [Suspect]
     Indication: OSTEOPENIA
     Dosage: 90 MG, QMO
     Route: 042
     Dates: start: 2006
  4. AREDIA [Suspect]
     Dosage: 90 MG, Q3MO
     Route: 042
     Dates: start: 200701
  5. AREDIA [Suspect]
     Dosage: 90 MG
     Route: 042
     Dates: start: 200901, end: 200903
  6. ZOMETA [Suspect]
     Indication: PLASMA CELL MYELOMA
     Dosage: 4 MG, QMO
     Route: 042
     Dates: start: 2002, end: 2002
  7. ZOMETA [Suspect]
     Indication: OSTEOPOROSIS
     Dates: start: 2004, end: 2006
  8. ZOMETA [Suspect]
     Indication: OSTEOPENIA
     Dates: end: 2007
  9. ZOMETA [Suspect]
     Dates: end: 200907
  10. SYNTHROID [Concomitant]
     Indication: HYPOTHYROIDISM
     Dosage: 50 UG, QD
     Route: 048
  11. INTERFERON [Concomitant]
  12. VITAMIN D [Concomitant]

REACTIONS (121)
  - Osteonecrosis of jaw [Unknown]
  - Injury [Unknown]
  - Infection [Unknown]
  - Deformity [Unknown]
  - Disability [Unknown]
  - Emotional distress [Unknown]
  - Syncope [Unknown]
  - Presyncope [Unknown]
  - Oral disorder [Unknown]
  - Gingival ulceration [Unknown]
  - Swelling [Unknown]
  - Kyphosis [Unknown]
  - Pharyngitis [Recovered/Resolved]
  - Salivary gland enlargement [Recovered/Resolved]
  - Intervertebral disc degeneration [Unknown]
  - Eyelid ptosis [Recovered/Resolved]
  - Dizziness [Unknown]
  - Spinal osteoarthritis [Unknown]
  - Intervertebral disc protrusion [Unknown]
  - Panic attack [Unknown]
  - Visual impairment [Unknown]
  - Pulmonary fibrosis [Unknown]
  - Cyst [Unknown]
  - Dyspnoea exertional [Unknown]
  - Cellulitis [Recovered/Resolved]
  - Bone lesion [Unknown]
  - Road traffic accident [Unknown]
  - Transient ischaemic attack [Unknown]
  - Cholelithiasis [Unknown]
  - Cholecystitis [Unknown]
  - Pain in jaw [Unknown]
  - Asthma [Unknown]
  - Tooth abscess [Unknown]
  - Dental caries [Unknown]
  - Carotid artery disease [Unknown]
  - Dyslipidaemia [Unknown]
  - Cystocele [Unknown]
  - Bladder prolapse [Unknown]
  - Aortic arteriosclerosis [Unknown]
  - Arthritis [Unknown]
  - Connective tissue disorder [Unknown]
  - Gingival pain [Unknown]
  - Osteolysis [Unknown]
  - Exposed bone in jaw [Unknown]
  - Lordosis [Unknown]
  - Facet joint syndrome [Unknown]
  - Osteosclerosis [Unknown]
  - Vertebral lesion [Unknown]
  - Osteoarthritis [Unknown]
  - Exostosis [Unknown]
  - Sinusitis [Unknown]
  - Toothache [Unknown]
  - Tooth disorder [Unknown]
  - Gingivitis [Unknown]
  - Ear infection [Unknown]
  - Osteoradionecrosis [Unknown]
  - Tendonitis [Unknown]
  - Atelectasis [Unknown]
  - Atrioventricular block first degree [Unknown]
  - Gastritis [Unknown]
  - Blindness [Unknown]
  - Dysarthria [Unknown]
  - Burns second degree [Unknown]
  - Embolism [Unknown]
  - Hypoaesthesia [Unknown]
  - Swelling face [Unknown]
  - Hallucination [Unknown]
  - Bronchitis [Unknown]
  - Duodenal ulcer [Unknown]
  - Tonsillitis [Unknown]
  - Umbilical hernia [Unknown]
  - Hepatic steatosis [Unknown]
  - Wound [Unknown]
  - Impaired healing [Unknown]
  - Stomatitis [Unknown]
  - Radiation injury [Unknown]
  - Palpitations [Unknown]
  - Hypothyroidism [Unknown]
  - Limb injury [Unknown]
  - Rectal haemorrhage [Unknown]
  - Lower gastrointestinal haemorrhage [Unknown]
  - Large intestine polyp [Unknown]
  - Rectal polyp [Unknown]
  - Haemorrhoids [Unknown]
  - Oesophageal stenosis [Unknown]
  - Haematochezia [Unknown]
  - Lumbar spinal stenosis [Unknown]
  - Hypoaesthesia oral [Unknown]
  - Osteomyelitis [Unknown]
  - Poor dental condition [Unknown]
  - Contusion [Unknown]
  - Erythema [Unknown]
  - Acquired oesophageal web [Unknown]
  - Goitre [Unknown]
  - Local swelling [Unknown]
  - Nasal turbinate hypertrophy [Unknown]
  - Oral infection [Unknown]
  - Gingival inflammation [Unknown]
  - Pain [Unknown]
  - Bone disorder [Unknown]
  - Dry mouth [Unknown]
  - Arthralgia [Unknown]
  - Musculoskeletal chest pain [Unknown]
  - Pain in extremity [Unknown]
  - Bursitis [Unknown]
  - Vitamin D deficiency [Unknown]
  - Back pain [Unknown]
  - Chest pain [Unknown]
  - Bone pain [Unknown]
  - Musculoskeletal pain [Unknown]
  - Fatigue [Unknown]
  - Vulvovaginal discomfort [Unknown]
  - Neck pain [Unknown]
  - Muscle spasms [Unknown]
  - Dysphagia [Unknown]
  - Eating disorder [Unknown]
  - Lip swelling [Unknown]
  - Abdominal pain [Unknown]
  - Diarrhoea [Unknown]
  - Asthenia [Unknown]
  - Tenderness [Unknown]
